FAERS Safety Report 10575827 (Version 2)
Quarter: 2014Q4

REPORT INFORMATION
  Report Type: Other
  Country: GB (occurrence: GB)
  Receive Date: 20141111
  Receipt Date: 20141111
  Transmission Date: 20150529
  Serious: Yes (Other)
  Sender: FDA-Public Use
  Company Number: GB-MYLANLABS-2014M1007346

PATIENT

DRUGS (4)
  1. GABAPENTIN. [Suspect]
     Active Substance: GABAPENTIN
     Indication: NEURALGIA
     Dosage: 2000 MG, QD
  2. GABAPENTIN. [Suspect]
     Active Substance: GABAPENTIN
     Indication: PAIN
     Dosage: SOMEWHERE BETWEEN 3600 -500MG DAILY
  3. OMEPRAZOLE. [Concomitant]
     Active Substance: OMEPRAZOLE
     Dosage: UNK
  4. COCODAMOL [Concomitant]
     Active Substance: ACETAMINOPHEN\CODEINE PHOSPHATE
     Dosage: UNK

REACTIONS (7)
  - Tooth infection [Not Recovered/Not Resolved]
  - Infection [Not Recovered/Not Resolved]
  - Dyspepsia [None]
  - Muscle injury [None]
  - Tooth abscess [Unknown]
  - Osteomyelitis [Not Recovered/Not Resolved]
  - Gingivitis [Not Recovered/Not Resolved]
